FAERS Safety Report 18053265 (Version 1)
Quarter: 2020Q3

REPORT INFORMATION
  Report Type: Spontaneous
  Country: JP (occurrence: JP)
  Receive Date: 20200722
  Receipt Date: 20200722
  Transmission Date: 20201103
  Serious: Yes (Other)
  Sender: FDA-Public Use
  Company Number: JP-BRISTOL-MYERS SQUIBB COMPANY-BMS-2020-058419

PATIENT

DRUGS (2)
  1. PLETAAL [Concomitant]
     Active Substance: CILOSTAZOL
     Indication: ATRIAL FIBRILLATION
     Dosage: UNK
     Route: 065
  2. ELIQUIS [Suspect]
     Active Substance: APIXABAN
     Indication: CEREBROVASCULAR ACCIDENT PROPHYLAXIS
     Dosage: UNK
     Route: 065

REACTIONS (1)
  - Arterial occlusive disease [Unknown]

NARRATIVE: CASE EVENT DATE: 20200716
